FAERS Safety Report 8856595 (Version 1)
Quarter: 2012Q4

REPORT INFORMATION
  Report Type: Spontaneous
  Country: US (occurrence: None)
  Receive Date: 20121019
  Receipt Date: 20121019
  Transmission Date: 20130627
  Serious: Yes (Other)
  Sender: FDA-Public Use
  Company Number: 2012US000016

PATIENT
  Sex: Female

DRUGS (3)
  1. ENTEREG [Suspect]
     Indication: DRUG USE FOR UNKNOWN INDICATION
  2. MICRONASE [Concomitant]
  3. INSULIN [Concomitant]

REACTIONS (1)
  - Blood glucose decreased [None]
